FAERS Safety Report 6328693-2 (Version None)
Quarter: 2009Q3

REPORT INFORMATION
  Report Type: 
  Country: None (occurrence: None)
  Receive Date: 20090826
  Receipt Date: 20090819
  Transmission Date: 20100115
  Serious: Yes (Other)
  Sender: FDA-Public Use
  Company Number: PHHY2009JP25276

PATIENT
  Sex: Female
  Weight: 46 kg

DRUGS (6)
  1. DIOVAN HCT [Suspect]
     Indication: HYPERTENSION
     Dosage: 1 DF DAILY
     Route: 048
     Dates: start: 20090328, end: 20090622
  2. DIOVAN [Suspect]
     Indication: HYPERTENSION
     Dosage: 80 MG
     Route: 048
     Dates: start: 20090218, end: 20090314
  3. ASASION [Suspect]
     Indication: INSOMNIA
     Dosage: 0.25 MG/DAY
     Route: 048
     Dates: start: 20081219
  4. OMEPRAL [Suspect]
     Indication: REFLUX OESOPHAGITIS
     Dosage: UNK
     Route: 048
     Dates: start: 20090218, end: 20090622
  5. TRICOR [Concomitant]
     Indication: DYSLIPIDAEMIA
     Dosage: UNK
     Route: 048
     Dates: start: 20090218, end: 20090327
  6. HALCION [Concomitant]
     Dosage: UNK
     Dates: start: 20090218

REACTIONS (4)
  - BLOOD URIC ACID INCREASED [None]
  - DECREASED APPETITE [None]
  - FATIGUE [None]
  - HEPATIC FUNCTION ABNORMAL [None]
